FAERS Safety Report 20084597 (Version 2)
Quarter: 2021Q4

REPORT INFORMATION
  Report Type: Spontaneous
  Country: US (occurrence: US)
  Receive Date: 20211118
  Receipt Date: 20211214
  Transmission Date: 20220303
  Serious: Yes (Other)
  Sender: FDA-Public Use
  Company Number: US-GILEAD-2021-0556061

PATIENT
  Age: 66 Year
  Sex: Female
  Weight: 78.458 kg

DRUGS (11)
  1. EPCLUSA [Suspect]
     Active Substance: SOFOSBUVIR\VELPATASVIR
     Indication: Chronic hepatitis C
     Dosage: 1 DOSAGE FORM, QD
     Route: 048
     Dates: start: 20210317, end: 20210607
  2. ASPIRIN [Concomitant]
     Active Substance: ASPIRIN
  3. VITAMIN B [Concomitant]
     Active Substance: VITAMIN B
  4. PLAVIX [Concomitant]
     Active Substance: CLOPIDOGREL BISULFATE
  5. CEFIXIME [Concomitant]
     Active Substance: CEFIXIME
  6. LASIX [Concomitant]
     Active Substance: FUROSEMIDE
  7. LANTUS [Concomitant]
     Active Substance: INSULIN GLARGINE
  8. TOPROL XL [Concomitant]
     Active Substance: METOPROLOL SUCCINATE
  9. NOVOLOG [Concomitant]
     Active Substance: INSULIN ASPART
  10. NYSTATIN [Concomitant]
     Active Substance: NYSTATIN
  11. VALSARTAN [Concomitant]
     Active Substance: VALSARTAN

REACTIONS (3)
  - Hepatitis C [Not Recovered/Not Resolved]
  - Drug ineffective [Not Recovered/Not Resolved]
  - Product dose omission issue [Recovered/Resolved]

NARRATIVE: CASE EVENT DATE: 20211001
